FAERS Safety Report 10916373 (Version 2)
Quarter: 2015Q2

REPORT INFORMATION
  Report Type: Spontaneous
  Country: US (occurrence: US)
  Receive Date: 20150316
  Receipt Date: 20150604
  Transmission Date: 20150821
  Serious: Yes (Death, Other)
  Sender: FDA-Public Use
  Company Number: US-ASTRAZENECA-2015SE21983

PATIENT
  Age: 24122 Day
  Sex: Female
  Weight: 68.5 kg

DRUGS (25)
  1. HYDROCODONE-ACETAMINOPHE [Concomitant]
     Dosage: 705-325 MG 1 TABLET BY MONTH
     Dates: start: 20141109
  2. PROCHLORPERAZINE MALEATE. [Concomitant]
     Active Substance: PROCHLORPERAZINE MALEATE
     Dates: start: 20150131
  3. MURRY N NAC [Concomitant]
     Dates: start: 20121127
  4. SERTRALINE [Concomitant]
     Active Substance: SERTRALINE HYDROCHLORIDE
     Dates: start: 20150121
  5. HYDROCODONE [Concomitant]
     Active Substance: HYDROCODONE
     Dosage: 7.5 MG TABLET
  6. COMPAZINE [Concomitant]
     Active Substance: PROCHLORPERAZINE MALEATE
     Route: 048
  7. DEXAMETHASONE. [Concomitant]
     Active Substance: DEXAMETHASONE
     Dosage: 4 MG 2 TABLET DAILY
     Dates: start: 20140916
  8. FERROUS SULFATE [Concomitant]
     Active Substance: FERROUS SULFATE\FERROUS SULFATE, DRIED
     Dosage: 325 MG THREE TIMES A DAY
     Route: 048
  9. LOMOTIL [Concomitant]
     Active Substance: ATROPINE SULFATE\DIPHENOXYLATE HYDROCHLORIDE
  10. DIPHENOXYLATE ATROPINE [Concomitant]
     Dosage: 2.5 TO .025 MG TABLET
     Dates: start: 20150211
  11. PROMETHAZINE [Concomitant]
     Active Substance: PROMETHAZINE\PROMETHAZINE HYDROCHLORIDE
     Dosage: 25 MG TABLET
     Dates: start: 20150312
  12. RITALIN [Concomitant]
     Active Substance: METHYLPHENIDATE HYDROCHLORIDE
  13. PEPCID [Concomitant]
     Active Substance: FAMOTIDINE
     Dates: start: 20121017
  14. METHYLPHENIDATE [Concomitant]
     Active Substance: METHYLPHENIDATE
     Dosage: 5 MG TABLET
     Dates: start: 20150209
  15. METOCLOPRAMIDE. [Concomitant]
     Active Substance: METOCLOPRAMIDE
     Dosage: 5 MG TABLET
  16. CHOLESTYRAMINE. [Concomitant]
     Active Substance: CHOLESTYRAMINE
     Dosage: 4 GM POWDER FOR SUSPENSION PACKET
  17. ACETAMINOPHEN. [Concomitant]
     Active Substance: ACETAMINOPHEN
     Dosage: 325 MG TABLET
  18. LYNPARZA [Suspect]
     Active Substance: OLAPARIB
     Indication: BRCA1 GENE MUTATION
     Route: 048
     Dates: start: 20150115, end: 20150228
  19. ATIVAN [Concomitant]
     Active Substance: LORAZEPAM
     Route: 048
     Dates: start: 20120612
  20. ZOLOFT [Concomitant]
     Active Substance: SERTRALINE HYDROCHLORIDE
     Route: 048
     Dates: start: 20140211
  21. MOVIPREP [Concomitant]
     Active Substance: ASCORBIC ACID\POLYETHYLENE GLYCOL 3350\POTASSIUM CHLORIDE\SODIUM ASCORBATE\SODIUM CHLORIDE\SODIUM SULFATE
     Dosage: 100 G7.5 GP-2 691 47 ORAL POWDER PACKET
  22. ZOFRAN [Concomitant]
     Active Substance: ONDANSETRON HYDROCHLORIDE
     Dates: start: 20150213
  23. ONDANSETRON HCL [Concomitant]
     Active Substance: ONDANSETRON HYDROCHLORIDE
     Dosage: 8 MG TABLET
     Dates: start: 20150221
  24. LORAZEPAM. [Concomitant]
     Active Substance: LORAZEPAM
     Dosage: 1 MG TABLET
  25. PROMETHEGAN [Concomitant]
     Active Substance: PROMETHAZINE HYDROCHLORIDE
     Dosage: 250MG RECTAL SUPPITORY
     Dates: start: 20150305

REACTIONS (15)
  - Nausea [Not Recovered/Not Resolved]
  - Vomiting [Not Recovered/Not Resolved]
  - Decreased appetite [Unknown]
  - Pollakiuria [Unknown]
  - Asthenia [Unknown]
  - Chills [Unknown]
  - Malignant peritoneal neoplasm [Fatal]
  - Diarrhoea [Unknown]
  - Abdominal pain lower [Unknown]
  - Hot flush [Unknown]
  - Dysgeusia [Unknown]
  - Influenza like illness [Unknown]
  - Weight decreased [Unknown]
  - Malaise [Unknown]
  - Nocturia [Unknown]

NARRATIVE: CASE EVENT DATE: 20150220
